FAERS Safety Report 8861456 (Version 4)
Quarter: 2013Q1

REPORT INFORMATION
  Report Type: Spontaneous
  Country: US (occurrence: None)
  Receive Date: 20121022
  Receipt Date: 20121211
  Transmission Date: 20140127
  Serious: Yes (Hospitalization)
  Sender: FDA-Public Use
  Company Number: US-009806

PATIENT
  Age: 52 Year
  Sex: Female
  Weight: 74.84 kg

DRUGS (6)
  1. TRANEXAMIC ACID [Suspect]
     Indication: MENORRHAGIA
     Dates: start: 20121009
  2. MICROGESTIN [Suspect]
     Indication: CONTRACEPTION
     Dosage: TOOK IT FOR SEVERAL DAYS
     Dates: start: 201210, end: 20121009
  3. LIDODERM [Concomitant]
  4. MULTIVITAMIN N /02208701/ (NOT SPECIFIED) [Concomitant]
  5. CALCIUM [Concomitant]
  6. VALIUM /00017001/ [Concomitant]

REACTIONS (5)
  - Retinal artery occlusion [None]
  - Dehydration [None]
  - Nausea [None]
  - Vomiting [None]
  - Blindness unilateral [None]
